FAERS Safety Report 11996549 (Version 1)
Quarter: 2016Q1

REPORT INFORMATION
  Report Type: Report from Study
  Country: KR (occurrence: KR)
  Receive Date: 20160203
  Receipt Date: 20160203
  Transmission Date: 20160526
  Serious: Yes (Other)
  Sender: FDA-Public Use
  Company Number: KR-GILEAD-2016-0195701

PATIENT
  Sex: Male

DRUGS (1)
  1. TENOFOVIR DISOPROXIL FUMARATE. [Suspect]
     Active Substance: TENOFOVIR DISOPROXIL FUMARATE
     Indication: CHRONIC HEPATITIS B
     Route: 048

REACTIONS (3)
  - Renal impairment [Unknown]
  - Blood creatine decreased [Unknown]
  - Diabetes mellitus [Unknown]
